FAERS Safety Report 7236902-0 (Version None)
Quarter: 2011Q1

REPORT INFORMATION
  Report Type: 
  Country: None (occurrence: None)
  Receive Date: 20110120
  Receipt Date: 20110113
  Transmission Date: 20110831
  Serious: Yes (Other)
  Sender: FDA-Public Use
  Company Number: US-BAYER-2011-004939

PATIENT
  Sex: Female

DRUGS (1)
  1. AVELOX [Suspect]
     Dosage: 400 MG, UNK
     Route: 048
     Dates: start: 20110101, end: 20110101

REACTIONS (1)
  - HAEMATOCHEZIA [None]
